FAERS Safety Report 5460971-1 (Version None)
Quarter: 2007Q3

REPORT INFORMATION
  Report Type: 
  Country: None (occurrence: None)
  Receive Date: 20070822
  Receipt Date: 20060727
  Transmission Date: 20080115
  Serious: Yes (Other)
  Sender: FDA-Public Use
  Company Number: 2006092970

PATIENT
  Sex: Female

DRUGS (6)
  1. NORVASC [Suspect]
     Indication: DRUG USE FOR UNKNOWN INDICATION
     Dosage: (5 MG), ORAL; MANY YR AGO
     Route: 048
  2. DIOVAN [Concomitant]
  3. VASOTEC [Concomitant]
  4. MAXIDEX (BENZALKONIUM CHLORIDE, DEXAMETHASONE, PHENYLMERCURIC NITRATE) [Concomitant]
  5. ACTONEL [Concomitant]
  6. LABETALOL HCL [Concomitant]

REACTIONS (2)
  - NASAL CONGESTION [None]
  - OEDEMA [None]
